FAERS Safety Report 9436048 (Version 2)
Quarter: 2013Q3

REPORT INFORMATION
  Report Type: Spontaneous
  Country: BR (occurrence: BR)
  Receive Date: 20130801
  Receipt Date: 20130910
  Transmission Date: 20140515
  Serious: Yes (Hospitalization)
  Sender: FDA-Public Use
  Company Number: BR-B.I. PHARMACEUTICALS,INC./RIDGEFIELD-2013-BR-00882BR

PATIENT
  Age: 68 Year
  Sex: Female

DRUGS (4)
  1. PRADAXA [Suspect]
     Indication: ATRIAL FIBRILLATION
     Dosage: 150 MG
     Route: 048
     Dates: start: 2013, end: 201306
  2. PRADAXA [Suspect]
     Dosage: 150 MG
     Route: 048
     Dates: start: 201307
  3. BENICAR [Concomitant]
     Indication: HYPERTENSION
     Dosage: 40 MG
  4. GLIFAGE [Concomitant]
     Indication: DIABETES MELLITUS
     Dosage: 500 MG

REACTIONS (2)
  - Gastrointestinal haemorrhage [Recovered/Resolved]
  - Colitis [Recovered/Resolved]
